FAERS Safety Report 7725000-5 (Version None)
Quarter: 2011Q3

REPORT INFORMATION
  Report Type: 
  Country: None (occurrence: None)
  Receive Date: 20110901
  Receipt Date: 20110830
  Transmission Date: 20111222
  Serious: Yes (Other)
  Sender: FDA-Public Use
  Company Number: ZA-ABBOTT-11P-143-0850068-00

PATIENT
  Age: 74 Year
  Sex: Male

DRUGS (1)
  1. HUMIRA [Suspect]
     Indication: ANKYLOSING SPONDYLITIS
     Route: 058

REACTIONS (5)
  - C-REACTIVE PROTEIN INCREASED [None]
  - HEADACHE [None]
  - CRANIAL NERVE PARALYSIS [None]
  - TEMPORAL ARTERITIS [None]
  - BLINDNESS [None]
